FAERS Safety Report 5575043-5 (Version None)
Quarter: 2007Q4

REPORT INFORMATION
  Report Type: 
  Country: None (occurrence: None)
  Receive Date: 20071227
  Receipt Date: 20071105
  Transmission Date: 20080405
  Serious: Yes (Hospitalization)
  Sender: FDA-Public Use
  Company Number: US-PURDUE-USA_2007_0030806

PATIENT
  Sex: Male

DRUGS (8)
  1. OXYCONTIN [Suspect]
     Indication: BACK PAIN
     Dosage: 20 MG, SEE TEXT
     Dates: start: 20000619, end: 20010108
  2. TORADOL [Concomitant]
  3. KLONOPIN [Concomitant]
     Dosage: .25 MG, BID
  4. METHADONE HCL [Concomitant]
     Dosage: 30 MG, UNK
  5. EFFEXOR [Concomitant]
  6. BUSPAR [Concomitant]
  7. VIOXX [Concomitant]
  8. BACLOFEN [Concomitant]

REACTIONS (3)
  - HALLUCINATION [None]
  - INSOMNIA [None]
  - SUICIDAL IDEATION [None]
